FAERS Safety Report 12429083 (Version 1)
Quarter: 2016Q2

REPORT INFORMATION
  Report Type: Spontaneous
  Country: US (occurrence: None)
  Receive Date: 20160601
  Receipt Date: 20160601
  Transmission Date: 20160815
  Serious: No
  Sender: FDA-Public Use
  Company Number: None

PATIENT
  Age: 56 Year
  Sex: Female

DRUGS (16)
  1. OXYCODONE [Concomitant]
     Active Substance: OXYCODONE
  2. PRILOSEC [Concomitant]
     Active Substance: OMEPRAZOLE MAGNESIUM
  3. DAKLINZA [Suspect]
     Active Substance: DACLATASVIR
     Indication: CHRONIC HEPATITIS
     Route: 048
     Dates: start: 20160429
  4. BENADRYL [Concomitant]
     Active Substance: DIPHENHYDRAMINE HYDROCHLORIDE
  5. ROPINIROLE. [Concomitant]
     Active Substance: ROPINIROLE
  6. AMBIEN [Concomitant]
     Active Substance: ZOLPIDEM TARTRATE
  7. HYDROXYZINE [Concomitant]
     Active Substance: HYDROXYZINE\HYDROXYZINE HYDROCHLORIDE
  8. TOPAMAX [Concomitant]
     Active Substance: TOPIRAMATE
  9. RIBASPHERE [Concomitant]
     Active Substance: RIBAVIRIN
  10. CITALOPRAM [Concomitant]
     Active Substance: CITALOPRAM HYDROBROMIDE
  11. PREMARIN [Concomitant]
     Active Substance: ESTROGENS, CONJUGATED
  12. ASPIRIN. [Concomitant]
     Active Substance: ASPIRIN
  13. MUPIROCIN. [Concomitant]
     Active Substance: MUPIROCIN
  14. SOVALDI [Suspect]
     Active Substance: SOFOSBUVIR
     Indication: CHRONIC HEPATITIS
     Route: 048
     Dates: start: 20160429
  15. BETAMETHASONE. [Concomitant]
     Active Substance: BETAMETHASONE
  16. TRAZODONE [Concomitant]
     Active Substance: TRAZODONE HYDROCHLORIDE

REACTIONS (4)
  - Vision blurred [None]
  - Back pain [None]
  - Headache [None]
  - Fatigue [None]

NARRATIVE: CASE EVENT DATE: 201604
